FAERS Safety Report 8281437-X (Version None)
Quarter: 2012Q2

REPORT INFORMATION
  Report Type: 
  Country: None (occurrence: None)
  Receive Date: 20120411
  Receipt Date: 20120411
  Transmission Date: 20120825
  Serious: No
  Sender: FDA-Public Use
  Company Number: None

PATIENT
  Sex: Female
  Weight: 76.2043 kg

DRUGS (1)
  1. BOTOX [Suspect]
     Indication: SKIN COSMETIC PROCEDURE
     Dosage: 6 UNITS ONCE NEEDLE  (ONE TIME EVENT)
     Dates: start: 20120228

REACTIONS (3)
  - VISUAL IMPAIRMENT [None]
  - HEADACHE [None]
  - EYELID PTOSIS [None]
